FAERS Safety Report 22970080 (Version 2)
Quarter: 2023Q4

REPORT INFORMATION
  Report Type: Report from Study
  Country: EG (occurrence: EG)
  Receive Date: 20230922
  Receipt Date: 20231023
  Transmission Date: 20240110
  Serious: Yes (Other)
  Sender: FDA-Public Use
  Company Number: EG-SANDOZ-SDZ2023EG031105

PATIENT
  Age: 15 Year
  Sex: Male
  Weight: 55 kg

DRUGS (1)
  1. OMNITROPE [Suspect]
     Active Substance: SOMATROPIN
     Indication: Growth hormone deficiency
     Dosage: 1.7 MG/DAY
     Route: 058
     Dates: start: 20220508, end: 20230908

REACTIONS (8)
  - Nervousness [Not Recovered/Not Resolved]
  - Disturbance in attention [Not Recovered/Not Resolved]
  - Papule [Not Recovered/Not Resolved]
  - Injection site pain [Recovered/Resolved]
  - Product dose omission issue [Unknown]
  - Device breakage [Unknown]
  - Wrong technique in product usage process [Unknown]
  - Product availability issue [Unknown]

NARRATIVE: CASE EVENT DATE: 20220508
